FAERS Safety Report 4867198-2 (Version None)
Quarter: 2005Q4

REPORT INFORMATION
  Report Type: 
  Country: None (occurrence: None)
  Receive Date: 20051222
  Receipt Date: 20051216
  Transmission Date: 20060501
  Serious: Yes (Other)
  Sender: FDA-Public Use
  Company Number: 051129-0001102

PATIENT
  Age: 17 Year
  Sex: Male

DRUGS (5)
  1. DACTINOMYCIN [Suspect]
     Indication: RHABDOMYOSARCOMA
     Dosage: INJ
  2. IFOSFAMIDE [Suspect]
     Indication: RHABDOMYOSARCOMA
  3. DOXORUBICIN HCL [Suspect]
     Indication: RHABDOMYOSARCOMA
  4. VINCRISTINE SULFATE [Suspect]
     Indication: RHABDOMYOSARCOMA
  5. CYCLOPHOSPHAMIDE [Suspect]
     Indication: RHABDOMYOSARCOMA

REACTIONS (5)
  - METASTASES TO BONE MARROW [None]
  - METASTASES TO LYMPH NODES [None]
  - POST PROCEDURAL NAUSEA [None]
  - POST PROCEDURAL VOMITING [None]
  - RHABDOMYOSARCOMA RECURRENT [None]
